FAERS Safety Report 18417767 (Version 4)
Quarter: 2021Q1

REPORT INFORMATION
  Report Type: Report from Study
  Country: FR (occurrence: FR)
  Receive Date: 20201022
  Receipt Date: 20210122
  Transmission Date: 20210419
  Serious: Yes (Life-Threatening, Hospitalization, Other)
  Sender: FDA-Public Use
  Company Number: FR-GILEAD-2018-0378871

PATIENT
  Age: 26 Year
  Sex: Male
  Weight: 78 kg

DRUGS (19)
  1. KTE?X19 [Suspect]
     Active Substance: AXICABTAGENE CILOLEUCEL
     Indication: ACUTE LYMPHOCYTIC LEUKAEMIA
     Dosage: 68 ML, ONCE
     Route: 042
     Dates: start: 20181119, end: 20181119
  2. TOCILIZUMAB. [Suspect]
     Active Substance: TOCILIZUMAB
     Indication: CYTOKINE RELEASE SYNDROME
     Dosage: 480 MG, ONCE
     Route: 042
     Dates: start: 20181125, end: 20181125
  3. LANZOPRAZOL [Concomitant]
     Active Substance: LANSOPRAZOLE
     Dosage: UNK
     Dates: start: 201808
  4. FLUDARABINE [Suspect]
     Active Substance: FLUDARABINE PHOSPHATE
     Indication: BONE MARROW CONDITIONING REGIMEN
     Dosage: 45 MG, QD
     Route: 042
     Dates: start: 20181115, end: 20181117
  5. BACTRIM [Concomitant]
     Active Substance: SULFAMETHOXAZOLE\TRIMETHOPRIM
     Dosage: UNK
     Dates: start: 201808
  6. VITAMIN K [PHYTOMENADIONE] [Concomitant]
  7. CYCLOPHOSPHAMIDE. [Suspect]
     Active Substance: CYCLOPHOSPHAMIDE
     Dosage: 280 MG, BID
     Route: 042
     Dates: start: 20181004, end: 20181006
  8. DEXAMETHASONE. [Concomitant]
     Active Substance: DEXAMETHASONE
     Dosage: UNK
     Dates: start: 20181127
  9. ALLOPURINOL. [Concomitant]
     Active Substance: ALLOPURINOL
     Dosage: UNK
     Dates: start: 20180925
  10. CEFEPIME [Concomitant]
     Active Substance: CEFEPIME HYDROCHLORIDE
     Indication: PYREXIA
     Dosage: UNK
     Dates: start: 201808
  11. CLAFORAN [Concomitant]
     Active Substance: CEFOTAXIME SODIUM
     Indication: DEVICE RELATED INFECTION
     Dosage: UNK
     Dates: start: 20181106
  12. METHOTREXATE. [Concomitant]
     Active Substance: METHOTREXATE
     Indication: PROPHYLAXIS
     Dosage: 15 MG, QD
     Route: 037
     Dates: start: 20181024, end: 20181024
  13. LOVENOX [Concomitant]
     Active Substance: ENOXAPARIN SODIUM
  14. CEFEPIME [Concomitant]
     Active Substance: CEFEPIME HYDROCHLORIDE
     Indication: CYTOKINE RELEASE SYNDROME
     Dosage: UNK
     Dates: start: 20181104, end: 20181106
  15. VINCRISTINE [Concomitant]
     Active Substance: VINCRISTINE
     Dosage: 2 MG, QD
     Route: 042
     Dates: start: 20181004, end: 20181004
  16. CEFEPIME [Concomitant]
     Active Substance: CEFEPIME HYDROCHLORIDE
     Indication: DEVICE RELATED INFECTION
     Dosage: UNK
     Dates: start: 20181123, end: 20181127
  17. CYCLOPHOSPHAMIDE. [Suspect]
     Active Substance: CYCLOPHOSPHAMIDE
     Indication: BONE MARROW CONDITIONING REGIMEN
     Dosage: 1640 MG, QD
     Route: 042
     Dates: start: 20181117, end: 20181117
  18. DEXAMETHASONE. [Concomitant]
     Active Substance: DEXAMETHASONE
     Dosage: 20 MG, QD
     Route: 042
     Dates: start: 20181004, end: 20181007
  19. ZELITREX [Concomitant]
     Active Substance: VALACYCLOVIR HYDROCHLORIDE
     Dosage: UNK
     Dates: start: 201808

REACTIONS (10)
  - Pyrexia [Recovered/Resolved]
  - Rash [Recovered/Resolved]
  - Hypofibrinogenaemia [Recovered/Resolved]
  - Tongue oedema [Recovered/Resolved]
  - Aphasia [Recovered/Resolved]
  - Hepatocellular injury [Recovered/Resolved]
  - Sinus tachycardia [Recovered/Resolved]
  - Face oedema [Recovered/Resolved]
  - Cytokine release syndrome [Recovered/Resolved]
  - Fatigue [Recovered/Resolved]

NARRATIVE: CASE EVENT DATE: 20181123
